FAERS Safety Report 8296557-3 (Version None)
Quarter: 2012Q2

REPORT INFORMATION
  Report Type: 
  Country: None (occurrence: None)
  Receive Date: 20120418
  Receipt Date: 20120410
  Transmission Date: 20120825
  Serious: Yes (Death)
  Sender: FDA-Public Use
  Company Number: CN-ROCHE-1058522

PATIENT
  Sex: Male
  Weight: 61 kg

DRUGS (3)
  1. XELODA [Suspect]
     Indication: METASTATIC GASTRIC CANCER
     Dosage: LAST DOSE PRIOR TO SAE: 2 APR 2012
     Dates: start: 20120312, end: 20120407
  2. OXALIPLATIN [Suspect]
     Indication: METASTATIC GASTRIC CANCER
     Dosage: LAST DOSE PRIOR TO SAE: 2 APR 2012
     Dates: start: 20120312, end: 20120408
  3. HERCEPTIN [Suspect]
     Indication: METASTATIC GASTRIC CANCER
     Dosage: LAST DOSE PRIOR TO SAE: 2 APR 2012
     Dates: start: 20120312, end: 20120408

REACTIONS (1)
  - SEPTIC SHOCK [None]
